FAERS Safety Report 4307222-9 (Version None)
Quarter: 2004Q1

REPORT INFORMATION
  Report Type: 
  Country: None (occurrence: None)
  Receive Date: 20040223
  Receipt Date: 20030919
  Transmission Date: 20041129
  Serious: Yes (Other)
  Sender: FDA-Public Use
  Company Number: WAES 0309USA02170

PATIENT
  Age: 33 Year
  Sex: Male
  Weight: 75.2971 kg

DRUGS (1)
  1. PROPECIA [Suspect]
     Indication: ALOPECIA
     Dosage: 1 MG/DAILY/PO
     Route: 048
     Dates: start: 19950101

REACTIONS (2)
  - BREAST MASS [None]
  - GYNAECOMASTIA [None]
